FAERS Safety Report 4411309-X (Version None)
Quarter: 2004Q3

REPORT INFORMATION
  Report Type: 
  Country: None (occurrence: None)
  Receive Date: 20040727
  Receipt Date: 20040713
  Transmission Date: 20050211
  Serious: Yes (Hospitalization)
  Sender: FDA-Public Use
  Company Number: GRP04000127

PATIENT
  Sex: Female

DRUGS (3)
  1. ACTONEL [Suspect]
     Dosage: 35 MG,1/WEEK, ORAL
     Route: 048
     Dates: start: 20040601
  2. NEXIUM MUPS (ESOMEPRAZOLE) [Concomitant]
  3. MORPHINE [Concomitant]

REACTIONS (4)
  - COUGH [None]
  - EPISTAXIS [None]
  - MOUTH HAEMORRHAGE [None]
  - THROAT IRRITATION [None]
